FAERS Safety Report 8017862-1 (Version None)
Quarter: 2012Q1

REPORT INFORMATION
  Report Type: 
  Country: None (occurrence: None)
  Receive Date: 20120103
  Receipt Date: 20111227
  Transmission Date: 20120608
  Serious: No
  Sender: FDA-Public Use
  Company Number: US-PFIZER INC-2011314969

PATIENT
  Age: 77 Year
  Sex: Male

DRUGS (1)
  1. ZOLOFT [Suspect]
     Indication: PANIC ATTACK
     Dosage: 25 MG, DAILY
     Dates: start: 20111201

REACTIONS (2)
  - INSOMNIA [None]
  - TREMOR [None]
